FAERS Safety Report 7946563-0 (Version None)
Quarter: 2011Q4

REPORT INFORMATION
  Report Type: 
  Country: None (occurrence: None)
  Receive Date: 20111129
  Receipt Date: 20111114
  Transmission Date: 20120403
  Serious: Yes (Congenital Anomaly)
  Sender: FDA-Public Use
  Company Number: DE-WATSON-2011-19224

PATIENT
  Sex: Male
  Weight: 2.91 kg

DRUGS (10)
  1. ASPIRIN [Concomitant]
     Indication: INFERTILITY FEMALE
     Dosage: 100 MG, DAILY
     Route: 064
  2. FOLIC ACID [Concomitant]
     Indication: PROPHYLAXIS OF NEURAL TUBE DEFECT
     Dosage: 0.8 MG, DAILY
     Route: 064
     Dates: start: 20091016, end: 20100628
  3. FUSIDIC ACID [Concomitant]
     Indication: BACTERIAL INFECTION
     Dosage: UNK
     Route: 064
     Dates: start: 20100113, end: 20100116
  4. METOPROLOL TARTRATE [Suspect]
     Indication: HYPERTENSION
     Dosage: 100 MG, DAILY
     Route: 064
     Dates: start: 20091016, end: 20100712
  5. METHYLDOPA [Suspect]
     Indication: HYPERTENSION
     Dosage: 750 MG, DAILY
     Route: 064
     Dates: start: 20091016, end: 20100712
  6. PREDNISOLONE [Concomitant]
     Indication: INFERTILITY FEMALE
     Dosage: 5 MG, DAILY
     Route: 064
     Dates: start: 20091016, end: 20100114
  7. NEPRESOL                           /00017902/ [Concomitant]
     Indication: HYPERTENSION
     Dosage: 100 MG, DAILY
     Route: 064
  8. ALBUTEROL SULFATE AUTOHALER [Concomitant]
     Indication: HYPERSENSITIVITY
     Dosage: UNK
     Route: 064
     Dates: start: 20091014, end: 20100129
  9. CEFUROXIM                          /00454602/ [Concomitant]
     Indication: BRONCHOPNEUMONIA
     Dosage: 1000 MG, DAILY
     Route: 064
     Dates: start: 20091114, end: 20091123
  10. INFLUENZA VACCINE [Concomitant]
     Indication: IMMUNISATION
     Dosage: 15 DAYS PRECONCETIONAL
     Route: 064

REACTIONS (1)
  - TALIPES [None]
